FAERS Safety Report 10677298 (Version 1)
Quarter: 2014Q4

REPORT INFORMATION
  Report Type: Report from Study
  Country: CA (occurrence: CA)
  Receive Date: 20141226
  Receipt Date: 20141226
  Transmission Date: 20150529
  Serious: Yes (Death, Hospitalization)
  Sender: FDA-Public Use
  Company Number: CA-ROCHE-1509799

PATIENT
  Age: 72 Year
  Sex: Female

DRUGS (16)
  1. TRASTUZUMAB EMTANSINE [Suspect]
     Active Substance: ADO-TRASTUZUMAB EMTANSINE
     Indication: BREAST CANCER
     Route: 041
     Dates: start: 20140911, end: 20141017
  2. DEXAMETHASONE. [Concomitant]
     Active Substance: DEXAMETHASONE
  3. PANTOLOC [Concomitant]
     Active Substance: PANTOPRAZOLE SODIUM
  4. VITAMIN B12 [Concomitant]
     Active Substance: CYANOCOBALAMIN
  5. FLAMAZINE [Concomitant]
     Active Substance: SILVER SULFADIAZINE
  6. NYSTATIN. [Concomitant]
     Active Substance: NYSTATIN
  7. CLOPIDOGREL [Concomitant]
     Active Substance: CLOPIDOGREL BISULFATE
  8. HUMULIN NOS [Concomitant]
     Active Substance: INSULIN HUMAN
  9. MAGIC MOUTHWASH - LIDOCAINE, DIPHENHYDRAMINE, MYLANTA [Concomitant]
  10. DURICEF [Concomitant]
     Active Substance: CEFADROXIL
  11. LASIX [Concomitant]
     Active Substance: FUROSEMIDE
  12. ONT-380 [Suspect]
     Active Substance: IRBINITINIB
     Indication: BREAST CANCER
     Route: 048
     Dates: start: 20140910, end: 20141105
  13. VITAMIN B6 [Concomitant]
     Active Substance: PYRIDOXINE HYDROCHLORIDE
  14. KOMBOGLYZE [Concomitant]
     Active Substance: METFORMIN HYDROCHLORIDE\SAXAGLIPTIN
  15. ATACAND PLUS [Concomitant]
     Active Substance: CANDESARTAN CILEXETIL\HYDROCHLOROTHIAZIDE
  16. BISOPROLOL [Concomitant]
     Active Substance: BISOPROLOL

REACTIONS (17)
  - Pyrexia [None]
  - Cardio-respiratory arrest [None]
  - Haemoglobin increased [None]
  - Platelet count abnormal [None]
  - Respiratory distress [Fatal]
  - Rash [None]
  - Oedema [None]
  - Haemoglobin abnormal [None]
  - White blood cell count abnormal [None]
  - Confusional state [Recovered/Resolved]
  - Metastases to central nervous system [None]
  - Pneumocystis jirovecii pneumonia [None]
  - Central nervous system lesion [None]
  - Myopathy [None]
  - Haematocrit abnormal [None]
  - Muscular weakness [None]
  - Pulmonary oedema [None]

NARRATIVE: CASE EVENT DATE: 20141121
